FAERS Safety Report 11292698 (Version 1)
Quarter: 2015Q2

REPORT INFORMATION
  Report Type: Spontaneous
  Country: US (occurrence: None)
  Receive Date: 20150623
  Receipt Date: 20150623
  Transmission Date: 20150821
  Serious: Yes (Other)
  Sender: FDA-Public Use
  Company Number: RB-74167-2015

PATIENT
  Age: 54 Year
  Sex: Female

DRUGS (1)
  1. MUCINEX [Suspect]
     Active Substance: GUAIFENESIN
     Indication: PRODUCT USED FOR UNKNOWN INDICATION
     Dosage: (TOOK 2 DOSES IN 2008. UNKNOWN)
     Dates: start: 2008

REACTIONS (2)
  - Myocardial infarction [None]
  - Chest discomfort [None]

NARRATIVE: CASE EVENT DATE: 2008
